FAERS Safety Report 17156684 (Version 1)
Quarter: 2019Q4

REPORT INFORMATION
  Report Type: Spontaneous
  Country: US (occurrence: US)
  Receive Date: 20191120
  Receipt Date: 20191120
  Transmission Date: 20200122
  Serious: No
  Sender: FDA-Public Use
  Company Number: None

PATIENT
  Age: 90 Year
  Sex: Male
  Weight: 70.31 kg

DRUGS (11)
  1. PREDNAZOMA [Concomitant]
  2. LOPAROM [Concomitant]
  3. LISINOPRIL. [Concomitant]
     Active Substance: LISINOPRIL
  4. TAMALOSIN [Concomitant]
  5. DILTIAZAM [Concomitant]
  6. VITAMIN B12 [Concomitant]
     Active Substance: CYANOCOBALAMIN
  7. XGIVA [Concomitant]
  8. LEVOFLOXACIN 500MG ONCE DAILY 5 DAYS [Suspect]
     Active Substance: LEVOFLOXACIN
     Indication: PNEUMONIA ASPIRATION
     Dosage: ?          QUANTITY:1 PILL;?
     Route: 048
     Dates: start: 20190927, end: 20191002
  9. ZYTIGA [Concomitant]
     Active Substance: ABIRATERONE ACETATE
  10. LEVOTHYROINE [Concomitant]
  11. CALCIUM [Concomitant]
     Active Substance: CALCIUM

REACTIONS (2)
  - Pain [None]
  - Tendonitis [None]

NARRATIVE: CASE EVENT DATE: 20191005
